FAERS Safety Report 8448400-7 (Version None)
Quarter: 2012Q2

REPORT INFORMATION
  Report Type: 
  Country: None (occurrence: None)
  Receive Date: 20120619
  Receipt Date: 20120613
  Transmission Date: 20120825
  Serious: Yes (Hospitalization, Other)
  Sender: FDA-Public Use
  Company Number: DE-ROCHE-1036346

PATIENT
  Age: 86 Year
  Sex: Female

DRUGS (9)
  1. LUCENTIS [Suspect]
     Dosage: EIGTH INJECTION
     Route: 050
     Dates: start: 20120113
  2. BISOPROLOL FUMARATE [Concomitant]
  3. EBRANTIL [Concomitant]
  4. LUCENTIS [Suspect]
     Dosage: SEVENTH INJECTION
     Route: 050
     Dates: start: 20111109
  5. LUCENTIS [Suspect]
     Indication: PRODUCT USED FOR UNKNOWN INDICATION
     Dosage: SIXTH INJECTION
     Route: 050
     Dates: start: 20110221
  6. VALSARTAN [Concomitant]
     Dosage: 160/12.5 MG
  7. GLIMEPIRIDE [Concomitant]
  8. DIGITOXIN TAB [Concomitant]
  9. TORSEMIDE [Concomitant]

REACTIONS (2)
  - ATRIAL FIBRILLATION [None]
  - PALPITATIONS [None]
